FAERS Safety Report 9735475 (Version 1)
Quarter: 2013Q4

REPORT INFORMATION
  Report Type: Spontaneous
  Country: US (occurrence: US)
  Receive Date: 20131206
  Receipt Date: 20131206
  Transmission Date: 20140711
  Serious: No
  Sender: FDA-Public Use
  Company Number: US-GILEAD-2009-0023248

PATIENT
  Age: 69 Year
  Sex: Female

DRUGS (9)
  1. LETAIRIS [Suspect]
     Indication: PULMONARY ARTERIAL HYPERTENSION
     Route: 048
     Dates: start: 20080423
  2. COUMADIN [Concomitant]
  3. SYMBICORT [Concomitant]
  4. CRESTOR [Concomitant]
  5. ASPIRIN [Concomitant]
  6. FUROSEMIDE [Concomitant]
  7. LEVOTHYROXINE [Concomitant]
  8. METFORMIN [Concomitant]
  9. MESALAMINE [Concomitant]

REACTIONS (2)
  - Hot flush [Not Recovered/Not Resolved]
  - Palpitations [Not Recovered/Not Resolved]
